FAERS Safety Report 17270820 (Version 1)
Quarter: 2020Q1

REPORT INFORMATION
  Report Type: Other
  Country: PL (occurrence: PL)
  Receive Date: 20200115
  Receipt Date: 20200115
  Transmission Date: 20200409
  Serious: Yes (Other)
  Sender: FDA-Public Use
  Company Number: PL-CELLTRION INC.-2020PL017583

PATIENT

DRUGS (10)
  1. DOCETAXEL. [Suspect]
     Active Substance: DOCETAXEL
     Indication: HER-2 POSITIVE BREAST CANCER
     Dosage: 1 EVERY 21 DAYS
     Route: 042
     Dates: start: 20190128, end: 20190520
  2. TRITACE [Concomitant]
     Active Substance: RAMIPRIL
     Dosage: FREQUENCY: PER DAY
     Route: 048
     Dates: start: 20190424
  3. PARACETAMOL [Concomitant]
     Active Substance: ACETAMINOPHEN
     Dosage: 1000 MG, DAILY
     Route: 048
     Dates: start: 20190424
  4. SPIRONOL [Concomitant]
     Active Substance: SPIRONOLACTONE
     Dosage: 25 MG, DAILY
     Route: 048
     Dates: start: 20190424
  5. LETROX [Concomitant]
     Active Substance: LEVOTHYROXINE SODIUM
     Dosage: FREQUENCY: Q2D
     Route: 048
     Dates: start: 20190424
  6. FUROSEMIDUM [FUROSEMIDE] [Concomitant]
     Active Substance: FUROSEMIDE
     Dosage: 40 MG, DAILY
     Route: 048
     Dates: start: 20190424
  7. NEBILET [Concomitant]
     Active Substance: NEBIVOLOL
     Dosage: FREQUENCY: EVERY OTHER DAY
     Route: 048
     Dates: start: 20181001
  8. PERTUZUMAB. [Suspect]
     Active Substance: PERTUZUMAB
     Indication: HER-2 POSITIVE BREAST CANCER
     Dosage: 420 MG EVERY 21 DAYS
     Route: 042
     Dates: start: 20190128
  9. TRASTUZUMAB (UNKNOWN) [Suspect]
     Active Substance: TRASTUZUMAB
     Indication: HER-2 POSITIVE BREAST CANCER
     Dosage: 6 MG EVERY 21 DAYS
     Route: 042
     Dates: start: 20190128
  10. LETROX [Concomitant]
     Active Substance: LEVOTHYROXINE SODIUM
     Dosage: FREQUENCY: Q2D
     Route: 048
     Dates: start: 20170101

REACTIONS (2)
  - Polyneuropathy [Not Recovered/Not Resolved]
  - Underdose [Unknown]

NARRATIVE: CASE EVENT DATE: 20190603
